FAERS Safety Report 7357318-2 (Version None)
Quarter: 2011Q1

REPORT INFORMATION
  Report Type: 
  Country: None (occurrence: None)
  Receive Date: 20110308
  Receipt Date: 20110222
  Transmission Date: 20110831
  Serious: Yes (Other)
  Sender: FDA-Public Use
  Company Number: CPL-2011-0003

PATIENT
  Age: 61 Year
  Sex: Male

DRUGS (5)
  1. REBOXETINE [Suspect]
     Indication: MAJOR DEPRESSION
     Dosage: 4 MG, QD;
  2. LIOTHYRONINE SODIUM [Suspect]
     Indication: MAJOR DEPRESSION
     Dosage: QD, ORAL
     Route: 048
  3. SERTRALINE HYDROCHLORIDE [Suspect]
     Indication: MAJOR DEPRESSION
     Dosage: 100 MG, QD, 50 MG, QD;
  4. CITALOPRAM HYDROBROMIDE [Concomitant]
  5. CLONAZEPAM [Concomitant]

REACTIONS (5)
  - POLLAKIURIA [None]
  - POTENTIATING DRUG INTERACTION [None]
  - URINE FLOW DECREASED [None]
  - URINARY HESITATION [None]
  - DRUG INTERACTION [None]
